FAERS Safety Report 8073283-7 (Version None)
Quarter: 2012Q1

REPORT INFORMATION
  Report Type: 
  Country: None (occurrence: None)
  Receive Date: 20120126
  Receipt Date: 20120116
  Transmission Date: 20120608
  Serious: Yes (Life-Threatening)
  Sender: FDA-Public Use
  Company Number: JP-PFIZER INC-2011313473

PATIENT
  Age: 19 Month
  Sex: Male

DRUGS (3)
  1. THERARUBICIN [Suspect]
     Indication: T-CELL TYPE ACUTE LEUKAEMIA
     Dosage: 9.8 MG
     Route: 041
     Dates: start: 20050512, end: 20050627
  2. DAUNORUBICIN HCL [Suspect]
     Indication: T-CELL TYPE ACUTE LEUKAEMIA
     Dosage: 19.6 MG
     Route: 041
  3. DOXORUBICIN HYDROCHLORIDE [Suspect]
     Indication: T-CELL TYPE ACUTE LEUKAEMIA
     Dosage: 12 MG
     Route: 041
     Dates: start: 20050401, end: 20050421

REACTIONS (1)
  - CARDIOMYOPATHY [None]
